FAERS Safety Report 4543282-8 (Version None)
Quarter: 2004Q4

REPORT INFORMATION
  Report Type: 
  Country: None (occurrence: None)
  Receive Date: 20041229
  Receipt Date: 20041217
  Transmission Date: 20050328
  Serious: Yes (Hospitalization)
  Sender: FDA-Public Use
  Company Number: 2004AC01058

PATIENT
  Age: 3 Year
  Sex: Male

DRUGS (1)
  1. PULMICORT [Suspect]
     Dosage: 200 UG BID IH
     Route: 055

REACTIONS (1)
  - ASTHMA [None]
